FAERS Safety Report 9454116 (Version 3)
Quarter: 2013Q4

REPORT INFORMATION
  Report Type: Spontaneous
  Country: US (occurrence: None)
  Receive Date: 20130807
  Receipt Date: 20131220
  Transmission Date: 20140711
  Serious: Yes (Hospitalization, Congenital Anomaly)
  Sender: FDA-Public Use
  Company Number: SYM-2013-07465

PATIENT
  Age: 0 Day
  Sex: Male

DRUGS (2)
  1. WELLBUTRIN XL [Suspect]
     Indication: PRODUCT USED FOR UNKNOWN INDICATION
     Route: 064
     Dates: start: 200603, end: 200609
  2. WELLBUTRIN XL [Suspect]
     Indication: DEPRESSION
     Route: 064
     Dates: start: 200603, end: 200609

REACTIONS (6)
  - Anomalous pulmonary venous connection [None]
  - Heart disease congenital [None]
  - Atrial septal defect [None]
  - Maternal drugs affecting foetus [None]
  - Caesarean section [None]
  - Persistent left superior vena cava [None]
